FAERS Safety Report 8288645-2 (Version None)
Quarter: 2012Q2

REPORT INFORMATION
  Report Type: 
  Country: None (occurrence: None)
  Receive Date: 20120416
  Receipt Date: 20120308
  Transmission Date: 20120825
  Serious: Yes (Other)
  Sender: FDA-Public Use
  Company Number: DE-BAXTER-2012BH007217

PATIENT
  Age: 62 Year
  Sex: Female

DRUGS (3)
  1. EXTRANEAL [Suspect]
     Route: 033
     Dates: start: 20100318
  2. NUTRINEAL [Suspect]
     Route: 033
     Dates: start: 20100318
  3. PHYSIOSOL IN PLASTIC CONTAINER [Suspect]
     Route: 033
     Dates: start: 20100318

REACTIONS (2)
  - FLUID OVERLOAD [None]
  - HERNIA [None]
